FAERS Safety Report 9382945 (Version 1)
Quarter: 2013Q3

REPORT INFORMATION
  Report Type: Spontaneous
  Country: FR (occurrence: FR)
  Receive Date: 20130703
  Receipt Date: 20130703
  Transmission Date: 20140515
  Serious: Yes (Life-Threatening)
  Sender: FDA-Public Use
  Company Number: FR-BAXTER-2013BAX024382

PATIENT
  Age: 49 Year
  Sex: Female

DRUGS (7)
  1. SEVOFLURANE BAXTER 1 ML/ML, LIQUIDE POUR INHALATION PAR VAPEUR [Suspect]
     Indication: ANAESTHESIA
     Route: 055
     Dates: start: 20100924, end: 20100924
  2. RAPIFEN [Suspect]
     Indication: ANAESTHESIA
     Route: 042
     Dates: start: 20100924, end: 20100924
  3. DIPRIVAN [Suspect]
     Indication: ANAESTHESIA
     Route: 042
     Dates: start: 20100924, end: 20100924
  4. LIORESAL [Concomitant]
     Indication: PRODUCT USED FOR UNKNOWN INDICATION
     Route: 065
  5. DEPAMIDE [Concomitant]
     Indication: PRODUCT USED FOR UNKNOWN INDICATION
     Route: 065
  6. LEXOMIL [Concomitant]
     Indication: PRODUCT USED FOR UNKNOWN INDICATION
     Route: 065
  7. LACTULOSE [Concomitant]
     Indication: PRODUCT USED FOR UNKNOWN INDICATION
     Route: 065

REACTIONS (1)
  - Cardio-respiratory arrest [Recovered/Resolved]
